FAERS Safety Report 5519912-0 (Version None)
Quarter: 2007Q4

REPORT INFORMATION
  Report Type: 
  Country: None (occurrence: None)
  Receive Date: 20071116
  Receipt Date: 20071113
  Transmission Date: 20080405
  Serious: Yes (Hospitalization)
  Sender: FDA-Public Use
  Company Number: PHEH2007US14755

PATIENT
  Age: 33 Year
  Sex: Female

DRUGS (5)
  1. TEGRETOL [Suspect]
  2. BETASERON [Suspect]
     Indication: MULTIPLE SCLEROSIS
     Dosage: 8 MIU, QOD
     Route: 058
     Dates: start: 20070118, end: 20070913
  3. NEURONTIN [Suspect]
  4. BACLOFEN [Suspect]
  5. ORAL CONTRACEPTIVE NOS [Suspect]

REACTIONS (4)
  - DEPRESSED LEVEL OF CONSCIOUSNESS [None]
  - DRUG INTERACTION [None]
  - FATIGUE [None]
  - INCOHERENT [None]
